FAERS Safety Report 4410051-9 (Version None)
Quarter: 2004Q3

REPORT INFORMATION
  Report Type: 
  Country: None (occurrence: None)
  Receive Date: 20040726
  Receipt Date: 20040715
  Transmission Date: 20050211
  Serious: Yes (Hospitalization, Other)
  Sender: FDA-Public Use
  Company Number: 200410379BYL

PATIENT
  Age: 53 Year
  Sex: Female

DRUGS (3)
  1. ADALAT CC [Suspect]
     Indication: HYPERTENSION
     Dosage: 20 MG, BID, ORAL
     Route: 048
     Dates: start: 20040416, end: 20040630
  2. DIOVAN [Concomitant]
  3. TENORMIN [Concomitant]

REACTIONS (7)
  - ARTHRALGIA [None]
  - BACK PAIN [None]
  - HEPATITIS ACUTE [None]
  - NEPHRITIS [None]
  - POLLAKIURIA [None]
  - PYREXIA [None]
  - RHINORRHOEA [None]
